FAERS Safety Report 5766880-2 (Version None)
Quarter: 2008Q2

REPORT INFORMATION
  Report Type: 
  Country: None (occurrence: None)
  Receive Date: 20080612
  Receipt Date: 20080604
  Transmission Date: 20081010
  Serious: Yes (Death, Hospitalization)
  Sender: FDA-Public Use
  Company Number: JP-AMGEN-US283061

PATIENT
  Age: 69 Year
  Sex: Female

DRUGS (3)
  1. ENBREL [Suspect]
     Indication: RHEUMATOID ARTHRITIS
     Dosage: UNSPECIFIED
     Route: 058
     Dates: start: 20070906, end: 20080416
  2. PREDNISOLONE [Suspect]
     Dosage: UNSPECIFIED
     Route: 048
  3. ISCOTIN [Concomitant]
     Dosage: UNSPECIFIED
     Route: 048

REACTIONS (1)
  - DISSEMINATED TUBERCULOSIS [None]
